FAERS Safety Report 6187968-0 (Version None)
Quarter: 2009Q2

REPORT INFORMATION
  Report Type: 
  Country: None (occurrence: None)
  Receive Date: 20090513
  Receipt Date: 20090504
  Transmission Date: 20091009
  Serious: Yes (Hospitalization, Other)
  Sender: FDA-Public Use
  Company Number: PL-ROCHE-631551

PATIENT
  Age: 56 Year
  Sex: Female

DRUGS (2)
  1. BONIVA [Suspect]
     Indication: OSTEOPOROSIS
     Route: 042
     Dates: start: 20081101
  2. VITRUM [Concomitant]
     Indication: OSTEOPOROSIS
     Dosage: DRUG: VITRUM CALCIUM/CALCIUM + VITAMIN D3 FREQUENCY: 2 X 1 TABLET DAILY
     Route: 048

REACTIONS (3)
  - DRUG ADMINISTRATION ERROR [None]
  - EXTRAVASATION [None]
  - OEDEMA [None]
